FAERS Safety Report 24541116 (Version 3)
Quarter: 2024Q4

REPORT INFORMATION
  Report Type: Spontaneous
  Country: US (occurrence: US)
  Receive Date: 20241023
  Receipt Date: 20241205
  Transmission Date: 20250114
  Serious: No
  Sender: ROCHE
  Company Number: US-ROCHE-10000114431

PATIENT
  Age: 43 Year
  Sex: Male
  Weight: 88.9 kg

DRUGS (2)
  1. HEMLIBRA [Suspect]
     Active Substance: EMICIZUMAB-KXWH
     Indication: Factor VIII deficiency
     Dosage: STRENGTH- 300MG/2ML
     Route: 058
     Dates: start: 201911
  2. xyntha solof injecton [Concomitant]
     Indication: Haemorrhage

REACTIONS (3)
  - Haemorrhage [Recovered/Resolved]
  - Haemorrhage [Recovered/Resolved]
  - Gout [Unknown]

NARRATIVE: CASE EVENT DATE: 20241014
